FAERS Safety Report 7118668-8 (Version None)
Quarter: 2010Q4

REPORT INFORMATION
  Report Type: 
  Country: None (occurrence: None)
  Receive Date: 20101123
  Receipt Date: 20101101
  Transmission Date: 20110411
  Serious: Yes (Hospitalization, Other)
  Sender: FDA-Public Use
  Company Number: US-BAYER-201023676NA

PATIENT
  Age: 19 Year
  Sex: Female
  Weight: 50 kg

DRUGS (7)
  1. YAZ [Suspect]
     Indication: MENORRHAGIA
     Route: 048
     Dates: start: 20070801, end: 20080501
  2. IBUPROFEN [Concomitant]
     Dosage: 3 PER DAY
     Dates: start: 20080509, end: 20080510
  3. MOTRIN [Concomitant]
  4. ADVIL [Concomitant]
  5. ALEVE (CAPLET) [Concomitant]
  6. CONCERTA [Concomitant]
     Indication: ATTENTION DEFICIT/HYPERACTIVITY DISORDER
  7. WOMEN!S ONE A DAY MULTIVITAMIN [Concomitant]

REACTIONS (12)
  - ARTHRALGIA [None]
  - BACK PAIN [None]
  - GROIN PAIN [None]
  - OEDEMA [None]
  - OEDEMA PERIPHERAL [None]
  - PAIN [None]
  - PAIN IN EXTREMITY [None]
  - PLEURITIC PAIN [None]
  - PULMONARY EMBOLISM [None]
  - PULMONARY INFARCTION [None]
  - VENA CAVA THROMBOSIS [None]
  - VENOUS INSUFFICIENCY [None]
